FAERS Safety Report 9354097 (Version 1)
Quarter: 2013Q2

REPORT INFORMATION
  Report Type: Spontaneous
  Country: US (occurrence: US)
  Receive Date: 20130618
  Receipt Date: 20130618
  Transmission Date: 20140414
  Serious: Yes (Hospitalization, Other)
  Sender: FDA-Public Use
  Company Number: US-JNJFOC-20130603451

PATIENT
  Age: 40 Year
  Sex: Male
  Weight: 97.52 kg

DRUGS (2)
  1. LEVAQUIN [Suspect]
     Indication: ANAL ABSCESS
     Route: 042
     Dates: start: 20130507, end: 20130513
  2. LEVAQUIN [Suspect]
     Indication: ANAL ABSCESS
     Route: 048
     Dates: start: 20130513, end: 20130517

REACTIONS (9)
  - Loss of consciousness [Recovered/Resolved]
  - Hypoglycaemia [Unknown]
  - Tremor [Not Recovered/Not Resolved]
  - Hypotension [Unknown]
  - Asthenia [Not Recovered/Not Resolved]
  - Night sweats [Not Recovered/Not Resolved]
  - Headache [Recovered/Resolved]
  - Chills [Not Recovered/Not Resolved]
  - Pyrexia [Not Recovered/Not Resolved]
